FAERS Safety Report 16253885 (Version 2)
Quarter: 2019Q3

REPORT INFORMATION
  Report Type: Spontaneous
  Country: US (occurrence: US)
  Receive Date: 20190430
  Receipt Date: 20190705
  Transmission Date: 20191004
  Serious: No
  Sender: FDA-Public Use
  Company Number: US-CELGENEUS-USA-20190409710

PATIENT
  Age: 55 Year
  Sex: Female

DRUGS (1)
  1. OTEZLA [Suspect]
     Active Substance: APREMILAST
     Indication: PSORIASIS
     Dosage: DAY 1: 10MG, DAY 2: 10MG AM 10 MG PM, DAY 3: 10 MG AM 20 MG PM, DAY 4: 20 MG AM 20 MG PM, DAY 5: 20M
     Route: 048
     Dates: start: 20190204

REACTIONS (2)
  - Sleep terror [Recovered/Resolved]
  - Nightmare [Recovered/Resolved]

NARRATIVE: CASE EVENT DATE: 20190206
